FAERS Safety Report 14478541 (Version 2)
Quarter: 2018Q1

REPORT INFORMATION
  Report Type: Spontaneous
  Country: US (occurrence: US)
  Receive Date: 20180202
  Receipt Date: 20180329
  Transmission Date: 20180509
  Serious: Yes (Other)
  Sender: FDA-Public Use
  Company Number: US-TAKEDA-2018TUS002332

PATIENT
  Sex: Female
  Weight: 42.63 kg

DRUGS (1)
  1. ENTYVIO [Suspect]
     Active Substance: VEDOLIZUMAB
     Indication: CROHN^S DISEASE
     Dosage: 300 MG, UNK
     Route: 042
     Dates: start: 201609

REACTIONS (4)
  - Pyrexia [Unknown]
  - Fatigue [Unknown]
  - Systemic lupus erythematosus [Not Recovered/Not Resolved]
  - Headache [Unknown]
